FAERS Safety Report 13696436 (Version 1)
Quarter: 2017Q2

REPORT INFORMATION
  Report Type: Spontaneous
  Country: None (occurrence: US)
  Receive Date: 20170627
  Receipt Date: 20170627
  Transmission Date: 20170830
  Serious: Yes (Hospitalization)
  Sender: FDA-Public Use
  Company Number: None

PATIENT
  Age: 46 Year
  Sex: Male
  Weight: 47.6 kg

DRUGS (1)
  1. CISPLATIN. [Suspect]
     Active Substance: CISPLATIN
     Dates: end: 20170607

REACTIONS (9)
  - Fatigue [None]
  - Blood culture positive [None]
  - Pneumoperitoneum [None]
  - Staphylococcal bacteraemia [None]
  - Chills [None]
  - Dyspnoea [None]
  - Malaise [None]
  - Mucosal inflammation [None]
  - Oropharyngeal pain [None]

NARRATIVE: CASE EVENT DATE: 20170615
